FAERS Safety Report 4337826-9 (Version None)
Quarter: 2004Q2

REPORT INFORMATION
  Report Type: 
  Country: None (occurrence: None)
  Receive Date: 20040406
  Receipt Date: 20040210
  Transmission Date: 20050107
  Serious: No
  Sender: FDA-Public Use
  Company Number: APP200400182(0)

PATIENT
  Age: 74 Year
  Sex: Female
  Weight: 68.4932 kg

DRUGS (1)
  1. HEPARIN SODIUM INJECTION [Suspect]
     Indication: ANTICOAGULANT THERAPY
     Dosage: UNK (5 USP UNITS, ONCE), INJECTION

REACTIONS (1)
  - BLEEDING TIME PROLONGED [None]
